FAERS Safety Report 6409016-7 (Version None)
Quarter: 2009Q4

REPORT INFORMATION
  Report Type: 
  Country: None (occurrence: None)
  Receive Date: 20091021
  Receipt Date: 20091012
  Transmission Date: 20100525
  Serious: Yes (Other)
  Sender: FDA-Public Use
  Company Number: AU-AMGEN-US365209

PATIENT
  Sex: Male
  Weight: 89 kg

DRUGS (6)
  1. ENBREL [Suspect]
     Indication: RHEUMATOID ARTHRITIS
     Dosage: 50MG WEEKLY
     Route: 058
     Dates: start: 20081201, end: 20090101
  2. ENBREL [Suspect]
     Dosage: 50MG WEEKLY
     Route: 058
     Dates: start: 20090101, end: 20090701
  3. METHOTREXATE [Concomitant]
     Indication: RHEUMATOID ARTHRITIS
     Dosage: 25MG WEEKLY INCREASED TO 32MG
     Dates: start: 20070701, end: 20080601
  4. METHOTREXATE [Concomitant]
     Dosage: 10MG WEEKLY
     Route: 048
     Dates: start: 20081201, end: 20090701
  5. SALAZOPYRIN [Concomitant]
     Dosage: 2G DAILY
     Dates: start: 20071101
  6. PREDNISONE [Concomitant]
     Indication: RHEUMATOID ARTHRITIS
     Dosage: ALMOST CONTINUOUSLY IN VARYING DOSES
     Dates: start: 20060201, end: 20090201

REACTIONS (4)
  - CONDITION AGGRAVATED [None]
  - RHEUMATOID ARTHRITIS [None]
  - RHEUMATOID LUNG [None]
  - WOUND INFECTION [None]
